FAERS Safety Report 10058499 (Version 1)
Quarter: 2014Q2

REPORT INFORMATION
  Report Type: Spontaneous
  Country: GR (occurrence: None)
  Receive Date: 20140402
  Receipt Date: 20140402
  Transmission Date: 20141212
  Serious: Yes (Death)
  Sender: FDA-Public Use
  Company Number: NGX_02304_2014

PATIENT
  Sex: Male

DRUGS (1)
  1. QUTENZA [Suspect]
     Indication: NEUROPATHY PERIPHERAL
     Dosage: (2 DF, (PATCH) TOPICAL)
     Route: 061
     Dates: start: 20131009, end: 20131009

REACTIONS (1)
  - Disease progression [None]
